FAERS Safety Report 19465928 (Version 1)
Quarter: 2021Q2

REPORT INFORMATION
  Report Type: Report from Study
  Country: JP (occurrence: JP)
  Receive Date: 20210625
  Receipt Date: 20210625
  Transmission Date: 20210717
  Serious: Yes (Death)
  Sender: FDA-Public Use
  Company Number: JP-JNJFOC-A-CH2016-138459

PATIENT
  Age: 47 Year
  Sex: Female
  Weight: 64.2 kg

DRUGS (47)
  1. UPTRAVI [Suspect]
     Active Substance: SELEXIPAG
     Route: 048
  2. LOSARTAN K [Suspect]
     Active Substance: LOSARTAN POTASSIUM
     Indication: RIGHT VENTRICULAR FAILURE
     Dosage: 15 MG, QD
     Route: 048
     Dates: end: 20160601
  3. HALFDIGOXIN [Concomitant]
     Active Substance: DIGOXIN
     Dosage: 0.125 MG, QD
  4. PIMOBENDAN [Concomitant]
     Active Substance: PIMOBENDAN
     Dosage: 2.5 MG, QD
  5. SLOW?K [Concomitant]
     Active Substance: POTASSIUM CHLORIDE
     Indication: HYPOKALAEMIA
     Dosage: 600 MG, QD
  6. UPTRAVI [Suspect]
     Active Substance: SELEXIPAG
     Dosage: 0.3 MG, BID
     Route: 048
     Dates: start: 20161214, end: 20161220
  7. LOSARTAN K [Suspect]
     Active Substance: LOSARTAN POTASSIUM
     Dosage: 10 MG, QD
     Route: 048
     Dates: start: 20161025, end: 20161101
  8. ADCIRCA [Suspect]
     Active Substance: TADALAFIL
     Dosage: 20 MG, QD
     Route: 048
     Dates: start: 20170913, end: 20171003
  9. FUROSEMIDE. [Concomitant]
     Active Substance: FUROSEMIDE
     Dosage: 120 MG, QD
  10. BERAPROST NA [Concomitant]
     Active Substance: BERAPROST SODIUM
  11. BAYASPIRIN [Concomitant]
     Active Substance: ASPIRIN
     Dosage: 100 MG, QD
  12. WARFARIN [Concomitant]
     Active Substance: WARFARIN
     Dosage: 4.25 MG, QD
  13. OPSUMIT [Suspect]
     Active Substance: MACITENTAN
     Indication: PULMONARY ARTERIAL HYPERTENSION
     Dosage: 10 MG, OD
     Route: 048
     Dates: start: 20160519, end: 20170711
  14. UPTRAVI [Suspect]
     Active Substance: SELEXIPAG
     Indication: PULMONARY ARTERIAL HYPERTENSION
     Dosage: 0.1 MG, BID
     Route: 048
     Dates: start: 20161129, end: 20161206
  15. UPTRAVI [Suspect]
     Active Substance: SELEXIPAG
     Dosage: 0.7 MG, BID
     Route: 048
     Dates: start: 20170510, end: 20170530
  16. LOSARTAN K [Suspect]
     Active Substance: LOSARTAN POTASSIUM
     Dosage: 25 MG, QD
     Route: 048
     Dates: start: 20170207, end: 20170214
  17. CARVEDILOL. [Suspect]
     Active Substance: CARVEDILOL
     Indication: PULMONARY ARTERIAL HYPERTENSION
     Dosage: 5 MG, QD
     Route: 048
     Dates: end: 20170119
  18. CARVEDILOL. [Suspect]
     Active Substance: CARVEDILOL
     Dosage: 1.25 MG, BID
     Route: 048
     Dates: start: 20170620
  19. OXYGEN. [Concomitant]
     Active Substance: OXYGEN
  20. UPTRAVI [Suspect]
     Active Substance: SELEXIPAG
     Dosage: 0.5MG AM, 0.6MG PM
     Route: 048
     Dates: start: 20170315, end: 20170418
  21. UPTRAVI [Suspect]
     Active Substance: SELEXIPAG
     Dosage: 1.3 MG, QD
     Route: 048
     Dates: start: 20170503, end: 20170509
  22. UPTRAVI [Suspect]
     Active Substance: SELEXIPAG
     Dosage: 0.7 MG, BID
     Route: 048
     Dates: start: 20170913
  23. OPSUMIT [Suspect]
     Active Substance: MACITENTAN
     Dosage: 7.5 MG, QD
     Route: 048
     Dates: start: 20170712, end: 20170718
  24. UPTRAVI [Suspect]
     Active Substance: SELEXIPAG
     Dosage: 0.2 MG, BID
     Route: 048
     Dates: start: 20161207, end: 20161213
  25. LUPRAC [Suspect]
     Active Substance: TORSEMIDE
     Indication: RIGHT VENTRICULAR FAILURE
     Dosage: 8 MG, QD
     Route: 048
     Dates: end: 20160601
  26. LUPRAC [Suspect]
     Active Substance: TORSEMIDE
     Dosage: 8 MG, QD
     Route: 048
     Dates: start: 20160816
  27. ADCIRCA [Suspect]
     Active Substance: TADALAFIL
     Indication: PULMONARY ARTERIAL HYPERTENSION
     Dosage: 40 MG, QD
     Route: 048
  28. ARTIST [Suspect]
     Active Substance: CARVEDILOL
     Dosage: 2.5 MG, QD
     Route: 048
     Dates: start: 20170620
  29. UPTRAVI [Suspect]
     Active Substance: SELEXIPAG
     Dosage: 0.5 MG, BID
     Route: 048
     Dates: start: 20161228, end: 20170106
  30. UPTRAVI [Suspect]
     Active Substance: SELEXIPAG
     Dosage: 0.6 MG, BID
     Route: 048
     Dates: start: 20170107, end: 20170131
  31. UPTRAVI [Suspect]
     Active Substance: SELEXIPAG
     Dosage: 0.4MG AM, 0.6MG PM
     Route: 048
     Dates: start: 20170215, end: 20170314
  32. UPTRAVI [Suspect]
     Active Substance: SELEXIPAG
     Dosage: 0.6 MG, BID
     Route: 048
     Dates: start: 20170419, end: 20170502
  33. UPTRAVI [Suspect]
     Active Substance: SELEXIPAG
     Dosage: 0.7MG AM, 0.8MG PM
     Route: 048
     Dates: start: 20170531, end: 20170912
  34. LOSARTAN K [Suspect]
     Active Substance: LOSARTAN POTASSIUM
     Dosage: 15 MG, QD
     Route: 048
     Dates: start: 20161102, end: 20170117
  35. LOSARTAN K [Suspect]
     Active Substance: LOSARTAN POTASSIUM
     Dosage: 20 MG, QD
     Route: 048
     Dates: start: 20170215, end: 20170620
  36. ADCIRCA [Suspect]
     Active Substance: TADALAFIL
     Dosage: 20 MG, QD
     Route: 048
  37. ARTIST [Suspect]
     Active Substance: CARVEDILOL
     Indication: PRODUCT USED FOR UNKNOWN INDICATION
     Dosage: 2.5 MG, QD
     Route: 048
     Dates: end: 20161115
  38. ARTIST [Suspect]
     Active Substance: CARVEDILOL
     Dosage: 5 MG, QD
     Route: 048
     Dates: start: 20161116, end: 20170619
  39. RIBALL [Concomitant]
     Active Substance: ALLOPURINOL
  40. SPIRONOLACTONE. [Concomitant]
     Active Substance: SPIRONOLACTONE
     Dosage: 50 MG, QD
  41. OPSUMIT [Suspect]
     Active Substance: MACITENTAN
     Dosage: 5 MG, QD
     Route: 048
     Dates: start: 20170719
  42. UPTRAVI [Suspect]
     Active Substance: SELEXIPAG
     Dosage: 0.4 MG, BID
     Route: 048
     Dates: start: 20161221, end: 20161227
  43. UPTRAVI [Suspect]
     Active Substance: SELEXIPAG
     Dosage: 0.5 MG, BID
     Route: 048
     Dates: start: 20170201, end: 20170214
  44. LOSARTAN K [Suspect]
     Active Substance: LOSARTAN POTASSIUM
     Dosage: 20 MG, QD
     Route: 048
     Dates: start: 20170118, end: 20170206
  45. ADCIRCA [Suspect]
     Active Substance: TADALAFIL
     Dosage: 20 MG, BID
     Route: 048
     Dates: end: 20170912
  46. ADCIRCA [Suspect]
     Active Substance: TADALAFIL
     Dosage: 10 MG, QD
     Route: 048
     Dates: start: 20171004
  47. ALLOPURINOL. [Concomitant]
     Active Substance: ALLOPURINOL
     Indication: HYPERURICAEMIA
     Dosage: 100 MG, QD

REACTIONS (11)
  - Blood creatinine increased [Recovered/Resolved]
  - Blood pressure decreased [Recovered/Resolved]
  - Pleural effusion [Recovering/Resolving]
  - Diarrhoea [Recovering/Resolving]
  - Cardiac failure [Fatal]
  - Off label use [Unknown]
  - Medication error [Unknown]
  - Dehydration [Recovered/Resolved]
  - Oedema peripheral [Recovered/Resolved]
  - Concomitant disease aggravated [Recovering/Resolving]
  - Ascites [Recovering/Resolving]

NARRATIVE: CASE EVENT DATE: 20160525
